FAERS Safety Report 12347881 (Version 1)
Quarter: 2016Q2

REPORT INFORMATION
  Report Type: Spontaneous
  Country: US (occurrence: US)
  Receive Date: 20160509
  Receipt Date: 20160509
  Transmission Date: 20160815
  Serious: No
  Sender: FDA-Public Use
  Company Number: US-UCBSA-2016002138

PATIENT
  Age: 19 Year
  Sex: Male

DRUGS (2)
  1. CIMZIA [Suspect]
     Active Substance: CERTOLIZUMAB PEGOL
     Dosage: RECEIVED HALF DOSE 200 MG
     Dates: start: 20160113, end: 20160113
  2. CIMZIA [Suspect]
     Active Substance: CERTOLIZUMAB PEGOL
     Indication: PRODUCT USED FOR UNKNOWN INDICATION
     Dosage: 400 MG, PRESCRIBED DOSE

REACTIONS (2)
  - Needle issue [Unknown]
  - Underdose [Unknown]

NARRATIVE: CASE EVENT DATE: 20160113
